FAERS Safety Report 25311591 (Version 1)
Quarter: 2025Q2

REPORT INFORMATION
  Report Type: Spontaneous
  Country: US (occurrence: US)
  Receive Date: 20250514
  Receipt Date: 20250514
  Transmission Date: 20250717
  Serious: Yes (Other)
  Sender: ABBVIE
  Company Number: US-ABBVIE-6274875

PATIENT
  Age: 64 Year
  Sex: Male
  Weight: 86 kg

DRUGS (5)
  1. OZURDEX [Suspect]
     Active Substance: DEXAMETHASONE
     Indication: Retinal vein occlusion
     Route: 065
     Dates: start: 20180613
  2. OZURDEX [Suspect]
     Active Substance: DEXAMETHASONE
     Route: 065
     Dates: start: 20241113
  3. OZURDEX [Suspect]
     Active Substance: DEXAMETHASONE
     Route: 065
     Dates: start: 20250205
  4. OZURDEX [Suspect]
     Active Substance: DEXAMETHASONE
     Route: 065
     Dates: start: 20250430
  5. EYLEA [Concomitant]
     Active Substance: AFLIBERCEPT
     Indication: Retinal vein occlusion

REACTIONS (9)
  - Endophthalmitis [Recovered/Resolved]
  - Eye infection [Unknown]
  - Ocular discomfort [Not Recovered/Not Resolved]
  - Endophthalmitis [Unknown]
  - Blindness transient [Not Recovered/Not Resolved]
  - Blindness [Recovered/Resolved]
  - Pain [Not Recovered/Not Resolved]
  - Pain [Recovered/Resolved]
  - Vision blurred [Not Recovered/Not Resolved]

NARRATIVE: CASE EVENT DATE: 20241113
